FAERS Safety Report 4314568-7 (Version None)
Quarter: 2004Q1

REPORT INFORMATION
  Report Type: 
  Country: None (occurrence: None)
  Receive Date: 20040309
  Receipt Date: 20040301
  Transmission Date: 20041129
  Serious: Yes (Other)
  Sender: FDA-Public Use
  Company Number: WAES 0403USA00070

PATIENT
  Age: 4 Month
  Sex: Female

DRUGS (4)
  1. FLORINEF [Concomitant]
     Route: 048
  2. FLORINEF [Concomitant]
     Route: 048
  3. HYDROCORTONE [Suspect]
     Route: 048
  4. HYDROCORTONE [Suspect]
     Route: 048
     Dates: start: 20031115

REACTIONS (4)
  - ELECTROLYTE IMBALANCE [None]
  - GENITAL DISORDER FEMALE [None]
  - HYPERTROPHIC OBSTRUCTIVE CARDIOMYOPATHY [None]
  - NEONATAL DISORDER [None]
